FAERS Safety Report 8800409 (Version 3)
Quarter: 2014Q3

REPORT INFORMATION
  Report Type: Report from Study
  Country: US (occurrence: US)
  Receive Date: 20120921
  Receipt Date: 20140903
  Transmission Date: 20150326
  Serious: Yes (Death)
  Sender: FDA-Public Use
  Company Number: US-ROCHE-1124803

PATIENT
  Sex: Female
  Weight: 93.2 kg

DRUGS (3)
  1. AVASTIN [Suspect]
     Active Substance: BEVACIZUMAB
     Indication: SOFT TISSUE SARCOMA
     Dosage: NUMBER OF DOSES: 12
     Route: 042
  2. AVASTIN [Suspect]
     Active Substance: BEVACIZUMAB
     Indication: ANAL CANCER
  3. AVASTIN [Suspect]
     Active Substance: BEVACIZUMAB
     Indication: RECTOSIGMOID CANCER

REACTIONS (2)
  - Soft tissue sarcoma [Fatal]
  - Off label use [Unknown]
